FAERS Safety Report 20947780 (Version 1)
Quarter: 2022Q2

REPORT INFORMATION
  Report Type: Spontaneous
  Country: US (occurrence: US)
  Receive Date: 20220611
  Receipt Date: 20220611
  Transmission Date: 20220720
  Serious: No
  Sender: FDA-Public Use
  Company Number: US-UNITED THERAPEUTICS-UNT-2022-012356

PATIENT
  Age: 70 Year
  Sex: Female

DRUGS (5)
  1. TYVASO [Suspect]
     Active Substance: TREPROSTINIL
     Indication: Pulmonary hypertension
     Dosage: UNK
     Dates: start: 201808
  2. TYVASO [Suspect]
     Active Substance: TREPROSTINIL
     Indication: Pulmonary fibrosis
     Dosage: 72 ?G, QID
  3. TYVASO [Suspect]
     Active Substance: TREPROSTINIL
     Indication: Interstitial lung disease
  4. TYVASO [Suspect]
     Active Substance: TREPROSTINIL
     Indication: Systemic sclerosis pulmonary
  5. OFEV [Suspect]
     Active Substance: NINTEDANIB
     Indication: Product used for unknown indication
     Dosage: UNK
     Route: 065
     Dates: end: 202205

REACTIONS (7)
  - Pulmonary fibrosis [Unknown]
  - Interstitial lung disease [Unknown]
  - Systemic sclerosis pulmonary [Unknown]
  - Diarrhoea [Unknown]
  - Decreased appetite [Unknown]
  - Product dose omission issue [Unknown]
  - Off label use [Unknown]

NARRATIVE: CASE EVENT DATE: 20180801
